FAERS Safety Report 14868705 (Version 2)
Quarter: 2018Q2

REPORT INFORMATION
  Report Type: Spontaneous
  Country: US (occurrence: US)
  Receive Date: 20180509
  Receipt Date: 20180608
  Transmission Date: 20180711
  Serious: No
  Sender: FDA-Public Use
  Company Number: US-PFIZER INC-2018186475

PATIENT
  Age: 64 Year
  Sex: Female

DRUGS (2)
  1. CLOBETASOL [Suspect]
     Active Substance: CLOBETASOL
     Dosage: UNK, 2 WEEKS ON ALTERNATING WITH 2 WEEKS OF CRISABOROLE
  2. EUCRISA [Suspect]
     Active Substance: CRISABOROLE
     Indication: DERMATITIS
     Dosage: UNK, 2 WEEKS ON ALTERNATING WITH 2 WEEKS OF CLOBETASOL
     Dates: start: 20170904

REACTIONS (1)
  - Drug ineffective for unapproved indication [Unknown]
